FAERS Safety Report 9812179 (Version 2)
Quarter: 2014Q1

REPORT INFORMATION
  Report Type: Spontaneous
  Country: US (occurrence: US)
  Receive Date: 20140112
  Receipt Date: 20140325
  Transmission Date: 20141002
  Serious: No
  Sender: FDA-Public Use
  Company Number: US-009507513-1401USA001688

PATIENT
  Age: 16 Year
  Sex: Female
  Weight: 79.37 kg

DRUGS (4)
  1. NEXPLANON [Suspect]
     Indication: CONTRACEPTION
     Dosage: UNK, 3 YEARS IMPLANT, IMPLANT IN LEFT ARM
     Route: 059
     Dates: start: 20131226
  2. PROZAC [Concomitant]
  3. WELLBUTRIN [Concomitant]
  4. CLARITIN [Concomitant]
     Route: 048

REACTIONS (1)
  - Implant site pain [Unknown]
